FAERS Safety Report 8389586 (Version 2)
Quarter: 2015Q3

REPORT INFORMATION
  Report Type: Report from Study
  Country: US (occurrence: US)
  Receive Date: 20120203
  Receipt Date: 20150731
  Transmission Date: 20151125
  Serious: Yes (Death)
  Sender: FDA-Public Use
  Company Number: US-ROCHE-1036310

PATIENT
  Age: 54 Year
  Sex: Male
  Weight: 71.28 kg

DRUGS (23)
  1. ALOXI [Concomitant]
     Active Substance: PALONOSETRON HYDROCHLORIDE
     Route: 042
  2. BENADRYL [Concomitant]
     Active Substance: DIPHENHYDRAMINE HYDROCHLORIDE
     Dosage: 10.5 MG TO 25 MG
     Route: 065
  3. ZOMETA [Concomitant]
     Active Substance: ZOLEDRONIC ACID
     Route: 042
  4. COUMADIN [Concomitant]
     Active Substance: WARFARIN SODIUM
     Route: 048
  5. AMBIEN [Concomitant]
     Active Substance: ZOLPIDEM TARTRATE
  6. XELODA [Suspect]
     Active Substance: CAPECITABINE
     Indication: PRODUCT USED FOR UNKNOWN INDICATION
     Route: 048
  7. ZOFRAN [Concomitant]
     Active Substance: ONDANSETRON HYDROCHLORIDE
     Route: 048
  8. COMPAZINE [Concomitant]
     Active Substance: PROCHLORPERAZINE MALEATE
     Route: 065
  9. MARINOL (UNITED STATES) [Concomitant]
     Route: 065
  10. DECADRON [Concomitant]
     Active Substance: DEXAMETHASONE
     Route: 042
  11. CCI-779 (TEMSIROLIMUS) [Suspect]
     Active Substance: TEMSIROLIMUS
     Indication: PRODUCT USED FOR UNKNOWN INDICATION
     Route: 065
  12. BENZONATE (UNK INGREDIENTS) [Concomitant]
     Route: 065
  13. TYLENOL [Concomitant]
     Active Substance: ACETAMINOPHEN
     Route: 048
  14. TAXOTERE [Suspect]
     Active Substance: DOCETAXEL
     Indication: RENAL CANCER
     Route: 042
     Dates: start: 20041027
  15. ARANESP [Concomitant]
     Active Substance: DARBEPOETIN ALFA
     Route: 058
  16. EMEND [Concomitant]
     Active Substance: APREPITANT
  17. AVASTIN [Suspect]
     Active Substance: BEVACIZUMAB
     Indication: PRODUCT USED FOR UNKNOWN INDICATION
     Route: 065
     Dates: start: 20041027
  18. LEXAPRO [Concomitant]
     Active Substance: ESCITALOPRAM OXALATE
     Route: 048
  19. LORAZEPAM. [Concomitant]
     Active Substance: LORAZEPAM
     Dosage: 0.5MG TO 1.0 MG
     Route: 065
  20. CODEINE [Concomitant]
     Active Substance: CODEINE
  21. PHENERGAN [Concomitant]
     Active Substance: PROMETHAZINE HYDROCHLORIDE
  22. VICODIN [Concomitant]
     Active Substance: ACETAMINOPHEN\HYDROCODONE BITARTRATE
  23. BENZONATATE. [Concomitant]
     Active Substance: BENZONATATE
     Route: 065

REACTIONS (8)
  - Cough [Unknown]
  - Vomiting [Unknown]
  - Dyspnoea [Unknown]
  - Fatigue [Unknown]
  - Lethargy [Unknown]
  - Death [Fatal]
  - Abdominal discomfort [Unknown]
  - Off label use [Unknown]

NARRATIVE: CASE EVENT DATE: 20041230
